FAERS Safety Report 23830942 (Version 2)
Quarter: 2024Q2

REPORT INFORMATION
  Report Type: Spontaneous
  Country: US (occurrence: US)
  Receive Date: 20240508
  Receipt Date: 20240509
  Transmission Date: 20240715
  Serious: Yes (Other)
  Sender: FDA-Public Use
  Company Number: US-BAYER-2024A066831

PATIENT
  Age: 79 Year
  Sex: Female

DRUGS (3)
  1. MIRALAX [Suspect]
     Active Substance: POLYETHYLENE GLYCOL 3350
     Indication: Diverticulitis
  2. DOCUSATE SODIUM [Suspect]
     Active Substance: DOCUSATE SODIUM
  3. TOFACITINIB [Suspect]
     Active Substance: TOFACITINIB

REACTIONS (3)
  - Diverticulitis intestinal perforated [None]
  - Off label use [None]
  - Contraindicated product administered [None]
